FAERS Safety Report 12081641 (Version 2)
Quarter: 2017Q1

REPORT INFORMATION
  Report Type: Spontaneous
  Country: US (occurrence: US)
  Receive Date: 20160216
  Receipt Date: 20170216
  Transmission Date: 20170428
  Serious: No
  Sender: FDA-Public Use
  Company Number: US-RISING PHARMACEUTICALS, INC.-2015RIS00182

PATIENT
  Age: 78 Year
  Sex: Female
  Weight: 44.44 kg

DRUGS (6)
  1. LUTEIN [Concomitant]
     Active Substance: LUTEIN
     Dosage: 20 MG, 1X/DAY
  2. GENTEAL EYE DROPS [Concomitant]
     Dosage: UNK UNK, AS NEEDED
     Route: 047
  3. LEVOFLOXACIN. [Suspect]
     Active Substance: LEVOFLOXACIN
     Indication: SINUSITIS
     Dosage: 1 GTT, 2X/DAY
     Route: 047
     Dates: start: 20151216, end: 20151220
  4. OASIS TEARS [Concomitant]
     Active Substance: GLYCERIN
     Dosage: UNK UNK, AS NEEDED
     Route: 047
  5. GENTEAL EYE OINTMENT [Concomitant]
     Dosage: UNK UNK, AS NEEDED
     Route: 047
  6. LEVOFLOXACIN. [Suspect]
     Active Substance: LEVOFLOXACIN
     Dosage: 1 GTT, 2X/DAY
     Route: 047
     Dates: start: 20151221

REACTIONS (6)
  - Pharyngitis [Recovered/Resolved]
  - Erythema [Recovered/Resolved]
  - Skin warm [Recovered/Resolved]
  - Dry eye [Unknown]
  - Visual acuity reduced [Unknown]
  - Off label use [Not Recovered/Not Resolved]

NARRATIVE: CASE EVENT DATE: 201512
